FAERS Safety Report 9858622 (Version 1)
Quarter: 2014Q1

REPORT INFORMATION
  Report Type: Spontaneous
  Country: US (occurrence: None)
  Receive Date: 20140130
  Receipt Date: 20140130
  Transmission Date: 20141002
  Serious: Yes (Other)
  Sender: FDA-Public Use
  Company Number: None

PATIENT
  Age: 81 Year
  Sex: Female
  Weight: 70.2 kg

DRUGS (2)
  1. OXYCODONE [Suspect]
     Indication: PAIN
     Dosage: Q4H PRN MOD. PAIN
     Route: 048
     Dates: start: 20140127, end: 20140128
  2. SCOPPLAMINE PATCH [Concomitant]

REACTIONS (1)
  - Encephalopathy [None]
